FAERS Safety Report 10043524 (Version 2)
Quarter: 2014Q2

REPORT INFORMATION
  Report Type: Spontaneous
  Country: US (occurrence: US)
  Receive Date: 20140328
  Receipt Date: 20140520
  Transmission Date: 20141212
  Serious: No
  Sender: FDA-Public Use
  Company Number: US-PFIZER INC-2014086431

PATIENT
  Age: 50 Year
  Sex: Female

DRUGS (1)
  1. VFEND [Suspect]
     Dosage: 400 MG

REACTIONS (1)
  - Visual impairment [Unknown]
